FAERS Safety Report 9797186 (Version 1)
Quarter: 2014Q1

REPORT INFORMATION
  Report Type: Spontaneous
  Country: US (occurrence: None)
  Receive Date: 20140102
  Receipt Date: 20140102
  Transmission Date: 20141002
  Serious: Yes (Hospitalization, Other)
  Sender: FDA-Public Use
  Company Number: None

PATIENT
  Age: 80 Year
  Sex: Male
  Weight: 81.19 kg

DRUGS (1)
  1. BRILINTA [Suspect]
     Indication: BLOOD DISORDER
     Dosage: 1 PILL
     Route: 048
     Dates: start: 20131220, end: 20131231

REACTIONS (2)
  - Dyspnoea [None]
  - Dyspnoea exertional [None]
